FAERS Safety Report 9812106 (Version 2)
Quarter: 2014Q1

REPORT INFORMATION
  Report Type: Report from Study
  Country: US (occurrence: US)
  Receive Date: 20140111
  Receipt Date: 20140111
  Transmission Date: 20141002
  Serious: Yes (Hospitalization)
  Sender: FDA-Public Use
  Company Number: US-ROCHE-783279

PATIENT
  Age: 65 Year
  Sex: Male
  Weight: 91.44 kg

DRUGS (2)
  1. VISMODEGIB [Suspect]
     Indication: ADENOCARCINOMA PANCREAS
     Dosage: CYCLE = 28 DAYS?DATE OF LAST DOSE PRIOR TO ADVERSE EVENT 1: 22/MAY/2011?DATE OF LAST DOSE PRIOR TO A
     Route: 048
  2. GEMCITABINE [Suspect]
     Indication: ADENOCARCINOMA PANCREAS
     Dosage: 1000MG/M2 IV OVER 30 MINUTES ON DAYS 1, 8, 15 STARTING WITH CYCLE 2 (DAY 29)
     Route: 042

REACTIONS (2)
  - Dehydration [Recovered/Resolved]
  - Cognitive disorder [Recovered/Resolved]
